FAERS Safety Report 20845854 (Version 1)
Quarter: 2022Q2

REPORT INFORMATION
  Report Type: Spontaneous
  Country: US (occurrence: US)
  Receive Date: 20220518
  Receipt Date: 20220518
  Transmission Date: 20220721
  Serious: No
  Sender: FDA-Public Use
  Company Number: US-PFIZER INC-202200715997

PATIENT
  Age: 73 Year
  Sex: Female
  Weight: 60.33 kg

DRUGS (2)
  1. XANAX [Suspect]
     Active Substance: ALPRAZOLAM
     Dosage: 1 MG
  2. XANAX [Suspect]
     Active Substance: ALPRAZOLAM
     Dosage: 2 MG

REACTIONS (3)
  - Insomnia [Recovering/Resolving]
  - Arthralgia [Recovering/Resolving]
  - Drug ineffective [Unknown]
